FAERS Safety Report 21004712 (Version 1)
Quarter: 2022Q2

REPORT INFORMATION
  Report Type: Spontaneous
  Country: CN (occurrence: CN)
  Receive Date: 20220624
  Receipt Date: 20220624
  Transmission Date: 20220721
  Serious: Yes (Death)
  Sender: FDA-Public Use
  Company Number: CN-002147023-NVSC2022CN136690

PATIENT

DRUGS (3)
  1. RUXOLITINIB [Suspect]
     Active Substance: RUXOLITINIB
     Indication: Myeloid leukaemia
     Dosage: 5 MG, BID
     Route: 048
  2. AZACITIDINE [Concomitant]
     Active Substance: AZACITIDINE
     Indication: Product used for unknown indication
     Dosage: UNK
     Route: 065
  3. VENETOCLAX [Concomitant]
     Active Substance: VENETOCLAX
     Indication: Product used for unknown indication
     Dosage: UNK
     Route: 065

REACTIONS (2)
  - Multiple organ dysfunction syndrome [Fatal]
  - Product use in unapproved indication [Unknown]
